FAERS Safety Report 6837285-8 (Version None)
Quarter: 2010Q3

REPORT INFORMATION
  Report Type: 
  Country: None (occurrence: None)
  Receive Date: 20100713
  Receipt Date: 20070509
  Transmission Date: 20110219
  Serious: No
  Sender: FDA-Public Use
  Company Number: US-PFIZER INC-2007038098

PATIENT
  Sex: Female
  Weight: 56.7 kg

DRUGS (12)
  1. CHANTIX [Suspect]
     Indication: SMOKING CESSATION THERAPY
     Dates: start: 20070503
  2. EFFEXOR [Concomitant]
     Indication: DEPRESSION
  3. ZYPREXA [Concomitant]
  4. VALIUM [Concomitant]
  5. TOPAMAX [Concomitant]
     Indication: MIGRAINE
  6. IMITREX [Concomitant]
  7. RELPAX [Concomitant]
  8. PERCOCET [Concomitant]
  9. SOMA [Concomitant]
  10. PREMARIN [Concomitant]
  11. TEMAZEPAM [Concomitant]
     Indication: SLEEP DISORDER
  12. PROTONIX [Concomitant]

REACTIONS (2)
  - INFLUENZA LIKE ILLNESS [None]
  - SOMNOLENCE [None]
